FAERS Safety Report 6976661-X (Version None)
Quarter: 2010Q3

REPORT INFORMATION
  Report Type: 
  Country: None (occurrence: None)
  Receive Date: 20100910
  Receipt Date: 20100902
  Transmission Date: 20110219
  Serious: Yes (Other)
  Sender: FDA-Public Use
  Company Number: US-PFIZER INC-2010111974

PATIENT
  Sex: Female
  Weight: 83.447 kg

DRUGS (5)
  1. CELEBREX [Suspect]
     Indication: ARTHRITIS
     Dosage: 200 MG, 1X/DAY
     Route: 048
     Dates: end: 20100101
  2. ACETAMINOPHEN W/ CODEINE [Concomitant]
     Dosage: 300MG/30 MG, UNK
  3. LEVOXYL [Concomitant]
     Indication: THYROID DISORDER
     Dosage: 0.75 MG, 1X/DAY
  4. FENOFIBRATE [Concomitant]
     Indication: BLOOD CHOLESTEROL INCREASED
     Dosage: 160 MG, UNK
  5. PRILOSEC [Concomitant]
     Indication: GASTRIC DISORDER
     Dosage: UNK

REACTIONS (2)
  - GASTRIC HAEMORRHAGE [None]
  - GASTROINTESTINAL ANGIODYSPLASIA [None]
